FAERS Safety Report 4707885-X (Version None)
Quarter: 2005Q2

REPORT INFORMATION
  Report Type: 
  Country: None (occurrence: None)
  Receive Date: 20050629
  Receipt Date: 20050318
  Transmission Date: 20051028
  Serious: No
  Sender: FDA-Public Use
  Company Number: 05P-163-0294495-00

PATIENT
  Age: 52 Year
  Sex: Female

DRUGS (6)
  1. HUMIRA [Suspect]
     Indication: RHEUMATOID ARTHRITIS
     Dosage: 40 MG, 1 IN 2 WK, SUBCUTANEOUS
     Route: 058
     Dates: start: 20050207
  2. HYDROXYCHLOROQUINE PHOSPHATE [Concomitant]
  3. MORPHINE [Concomitant]
  4. LANSOPRAZOLE [Concomitant]
  5. CLONAZEPAM [Concomitant]
  6. PROPACET 100 [Concomitant]

REACTIONS (2)
  - NASOPHARYNGITIS [None]
  - RHINITIS [None]
